FAERS Safety Report 7916758-0 (Version None)
Quarter: 2011Q4

REPORT INFORMATION
  Report Type: 
  Country: None (occurrence: None)
  Receive Date: 20111116
  Receipt Date: 20111109
  Transmission Date: 20120403
  Serious: Yes (Hospitalization)
  Sender: FDA-Public Use
  Company Number: FR-B.I. PHARMACEUTICALS,INC./RIDGEFIELD-2011-FF-01033FF

PATIENT
  Age: 80 Year
  Sex: Male

DRUGS (6)
  1. ANTALGIC DRUG [Concomitant]
  2. OMEPRAZOLE [Concomitant]
  3. OXYGEN [Concomitant]
     Dates: start: 20111001
  4. SPIRIVA [Suspect]
     Indication: CHRONIC OBSTRUCTIVE PULMONARY DISEASE
     Dosage: 18 MCG
     Route: 055
  5. FLUTICASONE PROPIONATE/SALMETEROL [Concomitant]
  6. CALCIUM [Concomitant]

REACTIONS (1)
  - SEPTIC SHOCK [None]
